FAERS Safety Report 7039024-7 (Version None)
Quarter: 2010Q4

REPORT INFORMATION
  Report Type: 
  Country: None (occurrence: None)
  Receive Date: 20101012
  Receipt Date: 20100511
  Transmission Date: 20110411
  Serious: Yes (Other)
  Sender: FDA-Public Use
  Company Number: US-PFIZER INC-2010059906

PATIENT

DRUGS (2)
  1. CELONTIN [Suspect]
  2. DEPAKOTE [Suspect]

REACTIONS (1)
  - LEUKOPENIA [None]
